FAERS Safety Report 10017707 (Version 1)
Quarter: 2014Q1

REPORT INFORMATION
  Report Type: Spontaneous
  Country: US (occurrence: US)
  Receive Date: 20140318
  Receipt Date: 20140318
  Transmission Date: 20141002
  Serious: Yes (Other)
  Sender: FDA-Public Use
  Company Number: US-BRISTOL-MYERS SQUIBB COMPANY-17439530

PATIENT
  Age: 51 Year
  Sex: Male
  Weight: 83.44 kg

DRUGS (3)
  1. ERBITUX [Suspect]
     Indication: COLON CANCER STAGE IV
  2. 5-FLUOROURACIL [Suspect]
  3. LEUCOVORIN [Concomitant]

REACTIONS (2)
  - Rash [Unknown]
  - Epistaxis [Unknown]
